APPROVED DRUG PRODUCT: ARIPIPRAZOLE
Active Ingredient: ARIPIPRAZOLE
Strength: 15MG
Dosage Form/Route: TABLET;ORAL
Application: A206240 | Product #004
Applicant: RISING PHARMA HOLDINGS INC
Approved: Sep 19, 2018 | RLD: No | RS: No | Type: DISCN